FAERS Safety Report 9411159 (Version 2)
Quarter: 2013Q4

REPORT INFORMATION
  Report Type: Spontaneous
  Country: US (occurrence: US)
  Receive Date: 20130721
  Receipt Date: 20131101
  Transmission Date: 20140711
  Serious: Yes (Other)
  Sender: FDA-Public Use
  Company Number: PHEH2013US015199

PATIENT
  Age: 41 Year
  Sex: Female

DRUGS (2)
  1. GILENYA [Suspect]
     Dosage: UNK
     Route: 048
     Dates: start: 20130514
  2. SOLU-MEDROL [Suspect]

REACTIONS (4)
  - Central nervous system lesion [Unknown]
  - Candida infection [Recovered/Resolved]
  - Sunburn [Recovered/Resolved]
  - Rash [Unknown]
